FAERS Safety Report 4505794-2 (Version None)
Quarter: 2004Q4

REPORT INFORMATION
  Report Type: 
  Country: None (occurrence: None)
  Receive Date: 20041025
  Receipt Date: 20040115
  Transmission Date: 20050328
  Serious: Yes (Hospitalization)
  Sender: FDA-Public Use
  Company Number: US-JNJFOC-20040103384

PATIENT
  Age: 76 Year
  Sex: Female
  Weight: 81.6475 kg

DRUGS (4)
  1. REMICADE [Suspect]
     Indication: RHEUMATOID ARTHRITIS
     Dosage: 2 MG/KG, INTRAVENOUS
     Route: 042
     Dates: start: 20031107
  2. METHOTREXATE SODIUM [Concomitant]
  3. 5-ASA (MESALAZINE) [Concomitant]
  4. PLAQUENIL [Concomitant]

REACTIONS (3)
  - ASPERGILLOSIS [None]
  - ENDOPHTHALMITIS [None]
  - STREPTOCOCCAL SEPSIS [None]
